FAERS Safety Report 7289354-9 (Version None)
Quarter: 2011Q1

REPORT INFORMATION
  Report Type: 
  Country: None (occurrence: None)
  Receive Date: 20110211
  Receipt Date: 20110203
  Transmission Date: 20110831
  Serious: Yes (Other)
  Sender: FDA-Public Use
  Company Number: US-US-EMD SERONO, INC.-7040538

PATIENT
  Sex: Male

DRUGS (2)
  1. CYMBALTA [Concomitant]
  2. REBIF [Suspect]
     Indication: MULTIPLE SCLEROSIS
     Route: 058
     Dates: start: 20101111

REACTIONS (10)
  - OPTIC NEURITIS [None]
  - BURNING SENSATION [None]
  - DROOLING [None]
  - PAIN [None]
  - THROAT IRRITATION [None]
  - NAUSEA [None]
  - PARAESTHESIA [None]
  - DIZZINESS [None]
  - DYSPNOEA [None]
  - HYPOAESTHESIA [None]
